FAERS Safety Report 16042612 (Version 1)
Quarter: 2019Q2

REPORT INFORMATION
  Report Type: Spontaneous
  Country: US (occurrence: US)
  Receive Date: 20190306
  Receipt Date: 20190306
  Transmission Date: 20190711
  Serious: Yes (Disabling)
  Sender: FDA-Public Use
  Company Number: None

PATIENT
  Age: 36 Year
  Sex: Male
  Weight: 103.5 kg

DRUGS (1)
  1. MEFLOQUINE [Suspect]
     Active Substance: MEFLOQUINE
     Indication: MALARIA PROPHYLAXIS

REACTIONS (28)
  - Syncope [None]
  - Nausea [None]
  - Postural orthostatic tachycardia syndrome [None]
  - Road traffic accident [None]
  - Neck pain [None]
  - Dizziness [None]
  - Loss of consciousness [None]
  - Tunnel vision [None]
  - Fear [None]
  - Vertigo [None]
  - Presyncope [None]
  - Visual impairment [None]
  - Suicidal ideation [None]
  - Depression [None]
  - Sleep disorder [None]
  - Palpitations [None]
  - Insomnia [None]
  - Headache [None]
  - Panic reaction [None]
  - Apathy [None]
  - Balance disorder [None]
  - Memory impairment [None]
  - Hyperhidrosis [None]
  - Anxiety [None]
  - Hypotension [None]
  - Craniocerebral injury [None]
  - Mental impairment [None]
  - Stress [None]

NARRATIVE: CASE EVENT DATE: 20090301
